FAERS Safety Report 16599186 (Version 1)
Quarter: 2019Q3

REPORT INFORMATION
  Report Type: Spontaneous
  Country: US (occurrence: US)
  Receive Date: 20190719
  Receipt Date: 20190719
  Transmission Date: 20191004
  Serious: No
  Sender: FDA-Public Use
  Company Number: US-SUNOVION-2019SUN002931

PATIENT
  Sex: Female

DRUGS (2)
  1. NICOTINE. [Concomitant]
     Active Substance: NICOTINE
  2. LATUDA [Suspect]
     Active Substance: LURASIDONE HYDROCHLORIDE
     Indication: BIPOLAR DISORDER
     Dosage: 20 MG, QD
     Route: 048

REACTIONS (3)
  - Tremor [Unknown]
  - Dyskinesia [Unknown]
  - Feeling abnormal [Unknown]
